FAERS Safety Report 6006094-4 (Version None)
Quarter: 2008Q4

REPORT INFORMATION
  Report Type: 
  Country: None (occurrence: None)
  Receive Date: 20081216
  Receipt Date: 20081216
  Transmission Date: 20090506
  Serious: Yes (Life-Threatening)
  Sender: FDA-Public Use
  Company Number: None

PATIENT
  Sex: Female

DRUGS (2)
  1. CLOZARIL [Suspect]
     Indication: ANTIPSYCHOTIC DRUG LEVEL
  2. EMSAM [Suspect]
     Indication: DEPRESSION

REACTIONS (4)
  - DRUG INTERACTION [None]
  - ORTHOSTATIC HYPOTENSION [None]
  - PRODUCT QUALITY ISSUE [None]
  - TACHYCARDIA [None]
